FAERS Safety Report 19731900 (Version 2)
Quarter: 2021Q3

REPORT INFORMATION
  Report Type: Report from Study
  Country: CN (occurrence: CN)
  Receive Date: 20210820
  Receipt Date: 20210903
  Transmission Date: 20211014
  Serious: Yes (Death, Other)
  Sender: FDA-Public Use
  Company Number: CN-BRISTOL-MYERS SQUIBB COMPANY-BMS-2021-074963

PATIENT
  Age: 65 Year
  Sex: Male

DRUGS (1)
  1. NIVOLUMAB [Suspect]
     Active Substance: NIVOLUMAB
     Indication: GASTRIC CANCER
     Dosage: 240 MILLIGRAM, Q2WK
     Route: 041
     Dates: start: 20210607

REACTIONS (5)
  - Renal failure [Fatal]
  - Liver disorder [Unknown]
  - Malignant neoplasm progression [Fatal]
  - Hepatitis [Fatal]
  - Renal disorder [Unknown]

NARRATIVE: CASE EVENT DATE: 20210812
